FAERS Safety Report 7248929-3 (Version None)
Quarter: 2011Q1

REPORT INFORMATION
  Report Type: 
  Country: None (occurrence: None)
  Receive Date: 20110128
  Receipt Date: 20110120
  Transmission Date: 20110831
  Serious: Yes (Other)
  Sender: FDA-Public Use
  Company Number: US-BRISTOL-MYERS SQUIBB COMPANY-13066568

PATIENT
  Age: 57 Year
  Sex: Male
  Weight: 150 kg

DRUGS (2)
  1. TORADOL [Suspect]
  2. COUMADIN [Suspect]

REACTIONS (6)
  - ASTHENIA [None]
  - SUICIDAL IDEATION [None]
  - FALL [None]
  - ADVERSE DRUG REACTION [None]
  - THROMBOSIS [None]
  - PULMONARY EMBOLISM [None]
